FAERS Safety Report 8649016 (Version 3)
Quarter: 2013Q3

REPORT INFORMATION
  Report Type: Report from Study
  Country: JP (occurrence: JP)
  Receive Date: 20120704
  Receipt Date: 20130716
  Transmission Date: 20140515
  Serious: Yes (Death, Hospitalization, Other)
  Sender: FDA-Public Use
  Company Number: PHHY2012JP009542

PATIENT
  Age: 70 Year
  Sex: Female

DRUGS (11)
  1. AFINITOR [Suspect]
     Indication: METASTATIC RENAL CELL CARCINOMA
     Dosage: 5 MG, DAILY
     Route: 048
     Dates: start: 20110621, end: 20120124
  2. LASIX [Concomitant]
     Indication: METASTATIC RENAL CELL CARCINOMA
     Dosage: 20 MG, UNK
     Route: 048
     Dates: start: 20110621, end: 20120124
  3. LASIX [Concomitant]
     Dosage: 40 MG, UNK
  4. ALDACTONE-A [Concomitant]
     Dosage: 25 MG, UNK
     Route: 048
     Dates: start: 20110621, end: 20120124
  5. GASTER D [Concomitant]
     Indication: METASTATIC RENAL CELL CARCINOMA
     Dosage: 40 MG, UNK
     Route: 048
     Dates: start: 20110621, end: 20120124
  6. GLIMICRON [Concomitant]
     Dosage: 20 MG, UNK
     Dates: start: 20110621, end: 20110816
  7. BASEN [Concomitant]
     Dosage: 0.9 MG, UNK
     Route: 048
     Dates: start: 20110621, end: 20120124
  8. OLMETEC [Concomitant]
     Dosage: 40 MG, UNK
     Route: 048
     Dates: start: 20110621, end: 20120224
  9. AMLODIN [Concomitant]
     Dosage: 10 MG, UNK
     Route: 048
     Dates: start: 20110621, end: 20120124
  10. AMARYL [Concomitant]
     Dosage: 1 MG, UNK
     Route: 048
     Dates: start: 20110817, end: 20120124
  11. FLUITRAN [Concomitant]
     Indication: METASTATIC RENAL CELL CARCINOMA
     Dosage: 1 MG, UNK
     Route: 048
     Dates: start: 20111109, end: 20120124

REACTIONS (5)
  - Cerebral haemorrhage [Fatal]
  - Diabetes mellitus [Recovering/Resolving]
  - Hypoalbuminaemia [Not Recovered/Not Resolved]
  - Oedema peripheral [Not Recovered/Not Resolved]
  - Anaemia [Recovering/Resolving]
